FAERS Safety Report 19895206 (Version 1)
Quarter: 2021Q3

REPORT INFORMATION
  Report Type: Spontaneous
  Country: US (occurrence: US)
  Receive Date: 20210929
  Receipt Date: 20210929
  Transmission Date: 20211014
  Serious: No
  Sender: FDA-Public Use
  Company Number: None

PATIENT
  Age: 58 Year
  Sex: Male
  Weight: 117 kg

DRUGS (1)
  1. AMOXICILLIN (AMOXICILLIN 500MG CAP) [Suspect]
     Active Substance: AMOXICILLIN
     Indication: HYPERSENSITIVITY
     Route: 048
     Dates: start: 20210813, end: 20210813

REACTIONS (9)
  - Respiratory depression [None]
  - Wheezing [None]
  - Rash [None]
  - Pruritus [None]
  - Anaphylactic reaction [None]
  - Cough [None]
  - Chest discomfort [None]
  - Dyspnoea [None]
  - Urticaria [None]

NARRATIVE: CASE EVENT DATE: 20210813
